FAERS Safety Report 15109318 (Version 1)
Quarter: 2018Q3

REPORT INFORMATION
  Report Type: Spontaneous
  Country: GB (occurrence: GB)
  Receive Date: 20180705
  Receipt Date: 20180705
  Transmission Date: 20181010
  Serious: Yes (Other)
  Sender: FDA-Public Use
  Company Number: GB-MYLANLABS-2018M1047303

PATIENT
  Age: 63 Year
  Sex: Female

DRUGS (7)
  1. AMITRIPTYLINE [Interacting]
     Active Substance: AMITRIPTYLINE
     Indication: PRODUCT USED FOR UNKNOWN INDICATION
     Dosage: 1 DF, QD
  2. LANSOPRAZOLE. [Concomitant]
     Active Substance: LANSOPRAZOLE
     Indication: GASTROOESOPHAGEAL REFLUX DISEASE
     Dosage: UNK
     Route: 065
  3. TRAMADOL. [Suspect]
     Active Substance: TRAMADOL
     Indication: PAIN
     Dosage: 1, 2, 3 TIMES A DAY AS NEEDED
     Route: 065
  4. SEVREDOL [Concomitant]
     Active Substance: MORPHINE
     Indication: PAIN
     Dosage: ONLY TAKEN IF PAIN IS REALLY UNBEARABLE
     Route: 065
  5. QUININE [Concomitant]
     Active Substance: QUININE
     Indication: MUSCLE SPASMS
     Dosage: UNK
     Route: 065
  6. AMITRIPTYLINE [Interacting]
     Active Substance: AMITRIPTYLINE
     Indication: PRODUCT USED FOR UNKNOWN INDICATION
     Dosage: 25 MG, QD
     Route: 065
  7. PARACETAMOL [Concomitant]
     Active Substance: ACETAMINOPHEN
     Indication: HEADACHE
     Dosage: UNK
     Route: 065

REACTIONS (30)
  - Coordination abnormal [Unknown]
  - Headache [Unknown]
  - Tinnitus [Unknown]
  - Chromaturia [Unknown]
  - Nervousness [Unknown]
  - Stress [Unknown]
  - Restlessness [Unknown]
  - Nausea [Unknown]
  - Tremor [Unknown]
  - Nightmare [Unknown]
  - Vision blurred [Unknown]
  - Confusional state [Unknown]
  - Paraesthesia [Unknown]
  - Seizure [Unknown]
  - Muscle spasms [Unknown]
  - Feeding disorder [Unknown]
  - Diarrhoea [Unknown]
  - Malaise [Unknown]
  - Heart rate irregular [Unknown]
  - Disorientation [Unknown]
  - Disturbance in attention [Unknown]
  - Decreased appetite [Unknown]
  - Weight increased [Not Recovered/Not Resolved]
  - Diplopia [Unknown]
  - Breast swelling [Unknown]
  - Drug interaction [Unknown]
  - Contusion [Unknown]
  - Night sweats [Unknown]
  - Dyskinesia [Unknown]
  - Insomnia [Unknown]

NARRATIVE: CASE EVENT DATE: 2018
